FAERS Safety Report 25900296 (Version 2)
Quarter: 2025Q4

REPORT INFORMATION
  Report Type: Spontaneous
  Country: US (occurrence: US)
  Receive Date: 20251009
  Receipt Date: 20251024
  Transmission Date: 20260118
  Serious: Yes (Other)
  Sender: TEVA
  Company Number: US-TEVA-VS-3378396

PATIENT
  Age: 63 Year
  Sex: Female

DRUGS (2)
  1. TESTOSTERONE [Suspect]
     Active Substance: TESTOSTERONE
     Indication: Transgender hormonal therapy
     Route: 030
  2. TESTOSTERONE [Suspect]
     Active Substance: TESTOSTERONE
     Indication: Transgender hormonal therapy
     Route: 030

REACTIONS (1)
  - Central serous chorioretinopathy [Recovered/Resolved]
